FAERS Safety Report 8611104-1 (Version None)
Quarter: 2012Q3

REPORT INFORMATION
  Report Type: 
  Country: None (occurrence: None)
  Receive Date: 20120808
  Receipt Date: 20120724
  Transmission Date: 20120928
  Serious: Yes (Death, Hospitalization)
  Sender: FDA-Public Use
  Company Number: 2012SGN00313

PATIENT
  Age: 57 Year
  Sex: Male

DRUGS (1)
  1. ADCETRIS [Suspect]
     Indication: ANAPLASTIC LARGE CELL LYMPHOMA T- AND NULL-CELL TYPES RECURRENT
     Dosage: 1.8 MG/KG, Q21D, INTRAVENOUS
     Route: 042
     Dates: start: 20120706, end: 20120706

REACTIONS (13)
  - DIARRHOEA [None]
  - SEPTIC SHOCK [None]
  - FEBRILE NEUTROPENIA [None]
  - DECREASED APPETITE [None]
  - BLEPHAROSPASM [None]
  - ACUTE HEPATIC FAILURE [None]
  - DISSEMINATED INTRAVASCULAR COAGULATION [None]
  - REFUSAL OF TREATMENT BY PATIENT [None]
  - METABOLIC ENCEPHALOPATHY [None]
  - RESPIRATORY DISTRESS [None]
  - RENAL FAILURE ACUTE [None]
  - HYPERHIDROSIS [None]
  - LIVER INJURY [None]
